FAERS Safety Report 23842902 (Version 2)
Quarter: 2024Q2

REPORT INFORMATION
  Report Type: Spontaneous
  Country: CH (occurrence: CH)
  Receive Date: 20240510
  Receipt Date: 20240527
  Transmission Date: 20240716
  Serious: Yes (Hospitalization, Other)
  Sender: FDA-Public Use
  Company Number: CH-TEVA-VS-3195709

PATIENT
  Sex: Male

DRUGS (2)
  1. DEXAMETHASONE [Suspect]
     Active Substance: DEXAMETHASONE
     Indication: NSAID exacerbated respiratory disease
     Dosage: FOR SEVERAL DECADES
     Route: 065
  2. ASPIRIN [Suspect]
     Active Substance: ASPIRIN
     Indication: Product used for unknown indication
     Dosage: ASPIRIN
     Route: 065

REACTIONS (5)
  - Skin laceration [Recovered/Resolved]
  - Rotator cuff syndrome [Unknown]
  - NSAID exacerbated respiratory disease [Unknown]
  - Arthritis bacterial [Unknown]
  - Staphylococcal infection [Unknown]
